FAERS Safety Report 8515258-7 (Version None)
Quarter: 2012Q3

REPORT INFORMATION
  Report Type: 
  Country: None (occurrence: None)
  Receive Date: 20120717
  Receipt Date: 20120711
  Transmission Date: 20120928
  Serious: Yes (Hospitalization, Other)
  Sender: FDA-Public Use
  Company Number: US-ROCHE-1051840

PATIENT
  Sex: Male
  Weight: 68 kg

DRUGS (32)
  1. DEXAMETHASONE [Suspect]
     Indication: METASTASES TO CENTRAL NERVOUS SYSTEM
     Route: 048
     Dates: start: 20120202
  2. KEPPRA [Concomitant]
     Dosage: CONTINUOUS
     Route: 042
     Dates: start: 20120420, end: 20120424
  3. LISINOPRIL [Concomitant]
     Route: 048
     Dates: start: 20100101
  4. HEPARIN LOCK-FLUSH [Concomitant]
     Indication: PROPHYLAXIS
     Route: 042
     Dates: start: 20120319
  5. LISPRO INSULIN [Concomitant]
     Dates: start: 20120319, end: 20120322
  6. ESMOLOL HCL [Concomitant]
     Dosage: CONTINUOUS
     Route: 042
     Dates: start: 20120420, end: 20120420
  7. HYDRALAZINE HYDROCHLORIDE [Concomitant]
     Route: 048
     Dates: start: 20120501, end: 20120510
  8. OMEPRAZOLE [Concomitant]
     Route: 048
     Dates: start: 20120208
  9. LISPRO INSULIN [Concomitant]
     Dosage: SLIDING SCALE
     Route: 058
     Dates: start: 20120319, end: 20120322
  10. NYSTATIN [Concomitant]
     Indication: PROPHYLAXIS
     Route: 048
     Dates: start: 20120501, end: 20120510
  11. LEVOFLOXACIN [Concomitant]
     Dates: start: 20120314, end: 20120319
  12. PHENYTOIN SODIUM [Concomitant]
     Indication: PROPHYLAXIS
     Route: 042
     Dates: start: 20120424, end: 20120424
  13. ACTIVASE [Concomitant]
     Indication: PROPHYLAXIS
     Dosage: SINGLE DOSE
     Route: 042
     Dates: start: 20120424, end: 20120424
  14. KEPPRA [Concomitant]
     Route: 048
     Dates: start: 20120424, end: 20120510
  15. SODIUM CHLORIDE [Concomitant]
     Indication: PROPHYLAXIS
     Dosage: CONTINUOUS
     Route: 042
     Dates: start: 20120420, end: 20120423
  16. ESOMEPRAZOLE [Concomitant]
     Indication: PROPHYLAXIS
     Route: 048
     Dates: start: 20120420, end: 20120510
  17. OMEPRAZOLE [Concomitant]
     Indication: PROPHYLAXIS
     Route: 048
     Dates: start: 20120202, end: 20120208
  18. DOCUSATE [Concomitant]
     Route: 048
     Dates: start: 20120501, end: 20120510
  19. PHENYTOIN SODIUM [Concomitant]
     Route: 042
     Dates: start: 20120424, end: 20120510
  20. FAMOTIDINE [Concomitant]
     Indication: PROPHYLAXIS
     Route: 048
     Dates: start: 20120501, end: 20120510
  21. LISINOPRIL [Concomitant]
     Route: 048
     Dates: start: 20120501, end: 20120510
  22. DOCUSATE [Concomitant]
     Indication: PROPHYLAXIS
     Route: 048
     Dates: start: 20120319, end: 20120322
  23. CARDENE [Concomitant]
     Dosage: 4 MG/HR CONTINUOUS
     Route: 042
     Dates: start: 20120420, end: 20120420
  24. DEXTROSE/POTASSIUM CHLORIDE [Concomitant]
     Dosage: 75 ML/HR
     Route: 041
     Dates: start: 20120305, end: 20120310
  25. ACETAMINOPHEN [Concomitant]
     Dosage: AS REQUIRED
     Route: 048
     Dates: start: 20010101
  26. VICODIN [Concomitant]
     Dosage: TOTAL DAILY DOSE: 500/50MG AS REQUIRED
     Route: 048
     Dates: start: 20120101
  27. KEPPRA [Concomitant]
     Indication: PROPHYLAXIS
     Route: 048
     Dates: start: 20120201
  28. ZANTAC [Concomitant]
     Indication: PROPHYLAXIS
     Route: 048
     Dates: start: 20120101
  29. METOPROLOL TARTRATE [Concomitant]
     Route: 048
     Dates: start: 20120501, end: 20120510
  30. VEMURAFENIB [Suspect]
     Indication: MALIGNANT MELANOMA
     Dosage: LAST DOSE PRIOR TO SAE ON 14/MAR/2012. DOSE INTERRUPTED ON 14/MAR/2012
     Route: 048
     Dates: start: 20120208, end: 20120314
  31. VEMURAFENIB [Suspect]
     Route: 048
     Dates: start: 20120404
  32. MORPHINE [Concomitant]
     Indication: PAIN
     Route: 042
     Dates: start: 20120510, end: 20120512

REACTIONS (4)
  - HAEMORRHAGE [None]
  - OSTEOMYELITIS [None]
  - HAEMORRHAGE INTRACRANIAL [None]
  - BRAIN OEDEMA [None]
